FAERS Safety Report 15464251 (Version 2)
Quarter: 2018Q4

REPORT INFORMATION
  Report Type: Spontaneous
  Country: US (occurrence: US)
  Receive Date: 20181004
  Receipt Date: 20181107
  Transmission Date: 20190204
  Serious: No
  Sender: FDA-Public Use
  Company Number: US-009507513-1809USA013430

PATIENT
  Sex: Female

DRUGS (1)
  1. NEXPLANON [Suspect]
     Active Substance: ETONOGESTREL
     Dosage: 1 IMPLANT, LEFT ARM
     Route: 058
     Dates: start: 201809

REACTIONS (6)
  - Limb discomfort [Unknown]
  - Device expulsion [Not Recovered/Not Resolved]
  - Device deployment issue [Not Recovered/Not Resolved]
  - Neuralgia [Unknown]
  - Implant site scar [Unknown]
  - Wrong technique in device usage process [Unknown]

NARRATIVE: CASE EVENT DATE: 2018
